FAERS Safety Report 26050043 (Version 2)
Quarter: 2025Q4

REPORT INFORMATION
  Report Type: Spontaneous
  Country: US (occurrence: US)
  Receive Date: 20251116
  Receipt Date: 20251204
  Transmission Date: 20260117
  Serious: Yes (Other)
  Sender: TEVA
  Company Number: US-TEVA-VS-3392295

PATIENT
  Age: 63 Year
  Sex: Female

DRUGS (6)
  1. METHYLPREDNISOLONE [Suspect]
     Active Substance: METHYLPREDNISOLONE
     Indication: Uveitis
     Dosage: IV?INFUSIONS 3 CYCLES
     Route: 065
  2. DEXAMETHASONE [Concomitant]
     Active Substance: DEXAMETHASONE
     Indication: Uveitis
     Route: 065
  3. TRIAMCINOLONE [Suspect]
     Active Substance: TRIAMCINOLONE
     Indication: Uveitis
     Dosage: TRIAMCINOLONE ACETONIDE
     Route: 065
  4. ADALIMUMAB [Suspect]
     Active Substance: ADALIMUMAB
     Indication: Uveitis
     Route: 065
  5. MYCOPHENOLATE MOFETIL [Suspect]
     Active Substance: MYCOPHENOLATE MOFETIL
     Indication: Uveitis
     Route: 065
  6. FARICIMAB [Concomitant]
     Active Substance: FARICIMAB
     Indication: Uveitis
     Dosage: INTRAVITREAL FARICIMAB
     Route: 065

REACTIONS (3)
  - Drug ineffective [Unknown]
  - Injection site reaction [Unknown]
  - Skin reaction [Unknown]
